FAERS Safety Report 16420857 (Version 1)
Quarter: 2019Q2

REPORT INFORMATION
  Report Type: Spontaneous
  Country: US (occurrence: US)
  Receive Date: 20190612
  Receipt Date: 20190612
  Transmission Date: 20190711
  Serious: No
  Sender: FDA-Public Use
  Company Number: US-US WORLDMEDS, LLC-USW201904-000734

PATIENT
  Sex: Female

DRUGS (2)
  1. LUCEMYRA [Suspect]
     Active Substance: LOFEXIDINE
     Dates: start: 20190303
  2. LUCEMYRA [Suspect]
     Active Substance: LOFEXIDINE
     Dosage: ON THE THIRD DAY, DOSE REDUCED

REACTIONS (3)
  - Headache [Recovered/Resolved]
  - Sedation [Recovered/Resolved]
  - Tinnitus [Recovered/Resolved]

NARRATIVE: CASE EVENT DATE: 20190303
